FAERS Safety Report 4303703-2 (Version None)
Quarter: 2004Q1

REPORT INFORMATION
  Report Type: 
  Country: None (occurrence: None)
  Receive Date: 20040212
  Receipt Date: 20040108
  Transmission Date: 20041129
  Serious: Yes (Disabling, Other)
  Sender: FDA-Public Use
  Company Number: 200308877

PATIENT

DRUGS (2)
  1. ALBUMINAR [Suspect]
     Dates: start: 20011212, end: 20011214
  2. BERIPLAST P (FACTOR XIII WITH FIBRINOGEN) [Suspect]
     Dates: start: 20011211, end: 20011211

REACTIONS (1)
  - HEPATITIS C [None]
